FAERS Safety Report 10567984 (Version 2)
Quarter: 2014Q4

REPORT INFORMATION
  Report Type: Spontaneous
  Country: PT (occurrence: PT)
  Receive Date: 20141106
  Receipt Date: 20141212
  Transmission Date: 20150529
  Serious: Yes (Disabling)
  Sender: FDA-Public Use
  Company Number: PT-ASTRAZENECA-2014SE82955

PATIENT
  Age: 60 Year
  Sex: Male

DRUGS (7)
  1. CRESTOR [Suspect]
     Active Substance: ROSUVASTATIN CALCIUM
     Indication: HYPERCHOLESTEROLAEMIA
     Route: 048
     Dates: start: 201402
  2. CRESTOR [Suspect]
     Active Substance: ROSUVASTATIN CALCIUM
     Indication: HYPERCHOLESTEROLAEMIA
     Dosage: HALF OF THE TABLET (5 MG) OR TOOK THE MEDICINE EACH TWO DAYS
     Route: 048
     Dates: end: 20141029
  3. PAXETIL [Concomitant]
     Active Substance: PAROXETINE HYDROCHLORIDE
  4. TRANXENE T-TAB [Concomitant]
     Active Substance: CLORAZEPATE DIPOTASSIUM
  5. ASPIRINA [Concomitant]
     Active Substance: ASPIRIN
     Dosage: 100 (1 PER DAY)
  6. NORVASC [Concomitant]
     Active Substance: AMLODIPINE BESYLATE
     Dosage: (1 PER DAY, 10MG ON THE MORNING; 10MG AT NIGHT)
  7. STATIN [Concomitant]
     Active Substance: UNSPECIFIED INGREDIENT

REACTIONS (4)
  - Abasia [Recovered/Resolved]
  - Off label use [Recovered/Resolved]
  - Myalgia [Recovered/Resolved]
  - Blood creatine phosphokinase increased [Recovered/Resolved]

NARRATIVE: CASE EVENT DATE: 20141028
